FAERS Safety Report 11147789 (Version 1)
Quarter: 2015Q2

REPORT INFORMATION
  Report Type: Spontaneous
  Country: US (occurrence: None)
  Receive Date: 20150528
  Receipt Date: 20150528
  Transmission Date: 20150821
  Serious: No
  Sender: FDA-Public Use
  Company Number: None

PATIENT
  Sex: Female

DRUGS (1)
  1. IBRANCE [Suspect]
     Active Substance: PALBOCICLIB
     Dosage: QD X 21 DAYS, 7 OFF
     Route: 048
     Dates: start: 20150421, end: 20150527

REACTIONS (8)
  - Fatigue [None]
  - Neuropathy peripheral [None]
  - Dyspnoea [None]
  - Alopecia [None]
  - Stomatitis [None]
  - Nausea [None]
  - Epistaxis [None]
  - Decreased appetite [None]
